FAERS Safety Report 8337949 (Version 2)
Quarter: 2012Q4

REPORT INFORMATION
  Report Type: 
  Country: US (occurrence: US)
  Receive Date: 20120116
  Receipt Date: 20120925
  Transmission Date: 20130627
  Serious: Yes (Hospitalization)
  Sender: FDA-Public Use
  Company Number: US-GLAXOSMITHKLINE-A0775127A

PATIENT
  Sex: Female
  Weight: 83.6 kg

DRUGS (8)
  1. AVANDIA [Suspect]
     Indication: DIABETES MELLITUS
     Dosage: 8MG Per day
     Route: 048
     Dates: start: 2000
  2. LOPID [Concomitant]
  3. THEOPHYLLINE [Concomitant]
  4. NEURONTIN [Concomitant]
  5. LIPITOR [Concomitant]
  6. ALBUTEROL [Concomitant]
  7. INSULIN [Concomitant]
  8. REZULIN [Concomitant]
     Dates: end: 2000

REACTIONS (5)
  - Cardiac disorder [Unknown]
  - Myocardial infarction [Unknown]
  - Cardiac failure congestive [Unknown]
  - Coronary artery disease [Unknown]
  - Angina pectoris [Unknown]
